FAERS Safety Report 6982335-1 (Version None)
Quarter: 2010Q3

REPORT INFORMATION
  Report Type: 
  Country: None (occurrence: None)
  Receive Date: 20100914
  Receipt Date: 20100308
  Transmission Date: 20110219
  Serious: Yes (Other)
  Sender: FDA-Public Use
  Company Number: US-PFIZER INC-2009294413

PATIENT
  Sex: Male

DRUGS (2)
  1. LYRICA [Suspect]
     Indication: HYPOAESTHESIA
     Dosage: 75 MG, 1X/DAY
     Route: 048
     Dates: start: 20091014
  2. LYRICA [Suspect]
     Indication: POLYNEUROPATHY

REACTIONS (2)
  - ARTHRALGIA [None]
  - FATIGUE [None]
